FAERS Safety Report 5900354-0 (Version None)
Quarter: 2008Q3

REPORT INFORMATION
  Report Type: 
  Country: None (occurrence: None)
  Receive Date: 20080926
  Receipt Date: 20080916
  Transmission Date: 20090109
  Serious: Yes (Life-Threatening, Hospitalization, Other)
  Sender: FDA-Public Use
  Company Number: CL-PFIZER INC-2008078734

PATIENT
  Age: 6 Year
  Sex: Female
  Weight: 18 kg

DRUGS (11)
  1. VFEND [Suspect]
     Route: 042
     Dates: start: 20080905, end: 20080905
  2. VFEND [Suspect]
     Route: 048
     Dates: start: 20080906, end: 20080915
  3. DEFERASIROX [Concomitant]
     Route: 048
  4. ALL OTHER THERAPEUTIC PRODUCTS [Concomitant]
     Route: 048
  5. LACTULOSE [Concomitant]
     Route: 048
  6. MEROPENEM [Concomitant]
     Route: 042
  7. ALL OTHER THERAPEUTIC PRODUCTS [Concomitant]
  8. TESTOSTERONE [Concomitant]
     Route: 048
  9. NISTATIN [Concomitant]
     Route: 048
  10. BACTRIM [Concomitant]
     Route: 048
  11. ACETAMINOPHEN [Concomitant]
     Route: 048

REACTIONS (6)
  - ECCHYMOSIS [None]
  - PETECHIAE [None]
  - PRURIGO [None]
  - PYREXIA [None]
  - RASH [None]
  - RASH MACULO-PAPULAR [None]
